FAERS Safety Report 16701420 (Version 1)
Quarter: 2019Q3

REPORT INFORMATION
  Report Type: Spontaneous
  Country: CN (occurrence: CN)
  Receive Date: 20190814
  Receipt Date: 20190814
  Transmission Date: 20191004
  Serious: Yes (Other)
  Sender: FDA-Public Use
  Company Number: CN-JNJFOC-20190810777

PATIENT

DRUGS (3)
  1. CHILDRENS MOTRIN [Suspect]
     Active Substance: IBUPROFEN
     Indication: HEART DISEASE CONGENITAL
     Dosage: FORM OF ADMINISTRATION: SUSPENSION DROP, TAKEN IN THREE SEPARATE DOSES)
     Route: 048
  2. CHILDRENS MOTRIN [Suspect]
     Active Substance: IBUPROFEN
     Dosage: AFTER 24 AND 48 HOURS
     Route: 045
  3. CHILDRENS MOTRIN [Suspect]
     Active Substance: IBUPROFEN
     Indication: PATENT DUCTUS ARTERIOSUS
     Dosage: AFTER DILUTION WITH 5% GLUCOSE, THEY WERE GIVEN BY NASAL FEEDING.
     Route: 045

REACTIONS (9)
  - Off label use [Unknown]
  - Hyperbilirubinaemia [Unknown]
  - Feeding intolerance [Unknown]
  - Therapeutic response unexpected [Unknown]
  - Necrotising colitis [Unknown]
  - Product use in unapproved indication [Unknown]
  - Oliguria [Unknown]
  - Gastrointestinal haemorrhage [Unknown]
  - Product use issue [Unknown]
